FAERS Safety Report 8046881-4 (Version None)
Quarter: 2012Q1

REPORT INFORMATION
  Report Type: 
  Country: None (occurrence: None)
  Receive Date: 20120116
  Receipt Date: 20120104
  Transmission Date: 20120608
  Serious: Yes (Hospitalization, Other)
  Sender: FDA-Public Use
  Company Number: CA-JNJFOC-20120104711

PATIENT
  Sex: Male

DRUGS (15)
  1. REMICADE [Suspect]
     Indication: CROHN'S DISEASE
     Route: 042
     Dates: start: 20111124
  2. REMICADE [Suspect]
     Route: 042
     Dates: start: 20060601
  3. VITAMIN D [Concomitant]
     Route: 065
  4. VITAMIN B-12 [Concomitant]
     Route: 065
  5. MULTI-VITAMINS [Concomitant]
     Route: 065
  6. ACETAMINOPHEN [Concomitant]
     Route: 065
  7. SOLU-CORTEF [Concomitant]
     Indication: PREMEDICATION
     Route: 042
  8. CALCIUM [Concomitant]
     Route: 065
  9. DEPO-TESTOSTERONE [Concomitant]
     Route: 065
  10. SCOPOLAMINE [Concomitant]
     Route: 065
  11. PERCOCET [Concomitant]
     Route: 065
  12. ALL OTHER THERAPEUTICS [Concomitant]
     Route: 065
  13. BENADRYL [Concomitant]
     Indication: PREMEDICATION
     Route: 042
  14. ASPIRIN [Concomitant]
     Route: 065
  15. TRIAZOLAM [Concomitant]
     Route: 065

REACTIONS (1)
  - PROSTATIC OPERATION [None]
